FAERS Safety Report 12263206 (Version 3)
Quarter: 2019Q2

REPORT INFORMATION
  Report Type: Spontaneous
  Country: US (occurrence: US)
  Receive Date: 20160413
  Receipt Date: 20190610
  Transmission Date: 20190711
  Serious: No
  Sender: FDA-Public Use
  Company Number: US-PFIZER INC-2016134196

PATIENT
  Age: 50 Year
  Sex: Female
  Weight: 67.12 kg

DRUGS (23)
  1. RETIN-A [Concomitant]
     Active Substance: TRETINOIN
     Dosage: 0.05% CREAM 1 APP, 1X/DAY AT BEDTIME
     Route: 061
  2. TRIAMCINOLONE [Concomitant]
     Active Substance: TRIAMCINOLONE
     Dosage: 0.1% CREAM 1 APP, 3X/DAY
     Route: 061
  3. FLUTICASONE. [Concomitant]
     Active Substance: FLUTICASONE
     Dosage: 50 MCG/INH SPRAY 2 SPRAYS, 1X/DAY
     Route: 045
  4. PROPRANOLOL ER [Concomitant]
     Active Substance: PROPRANOLOL HYDROCHLORIDE
     Dosage: 80 MG, UNK
  5. ZYRTEC [Concomitant]
     Active Substance: CETIRIZINE HYDROCHLORIDE
     Dosage: 1 DF, UNK
     Route: 048
  6. AZELASTINE HYDROCHLORIDE. [Concomitant]
     Active Substance: AZELASTINE HYDROCHLORIDE
     Dosage: 2 GTT, 2X/DAY
  7. LYRICA [Suspect]
     Active Substance: PREGABALIN
     Indication: FIBROMYALGIA
     Dosage: 100 MG QHS
     Route: 048
  8. MUPIROCIN. [Concomitant]
     Active Substance: MUPIROCIN
     Dosage: 2 % OINTMENT 1 APP, 2X/DAY
     Route: 045
  9. ACYCLOVIR. [Concomitant]
     Active Substance: ACYCLOVIR
     Dosage: 800 MG 1 TAB, 5 TIMES A DAY
     Route: 048
  10. LYRICA [Suspect]
     Active Substance: PREGABALIN
     Indication: PHARYNGITIS
     Dosage: 100 MG, DAILY
     Route: 048
  11. ZYRTEC [Concomitant]
     Active Substance: CETIRIZINE HYDROCHLORIDE
     Dosage: 10 MG, UNK
  12. ESTRADIOL-NORETHISTERONE [Concomitant]
     Dosage: [ESTRADIOL 1.0 MG, NORETHISTERONE 0.5 MG], 1X/DAY
     Route: 048
  13. XANAX [Concomitant]
     Active Substance: ALPRAZOLAM
     Indication: PANIC ATTACK
     Dosage: 0.5 MG, AS NEEDED
     Route: 048
  14. LYRICA [Suspect]
     Active Substance: PREGABALIN
     Dosage: 100 MG, 1X/DAY (AT BEDTIME)
     Route: 048
  15. SUMATRIPTAN. [Concomitant]
     Active Substance: SUMATRIPTAN
     Dosage: 100 MG, 1X/DAY
     Route: 048
  16. DICLOFENAC [Concomitant]
     Active Substance: DICLOFENAC
     Dosage: 1% 2 G, 3X/DAY
     Route: 061
  17. INDERAL LA [Concomitant]
     Active Substance: PROPRANOLOL HYDROCHLORIDE
     Dosage: 120 MG, 1X/DAY
     Route: 048
  18. NAPROXEN SODIUM. [Concomitant]
     Active Substance: NAPROXEN SODIUM
     Dosage: 500 MG, UNK
  19. NAPROSYN [Concomitant]
     Active Substance: NAPROXEN
     Indication: PAIN
     Dosage: 500 MG, 2X/DAY WITH FOOD, PRN
     Route: 048
  20. MEDROL [Concomitant]
     Active Substance: METHYLPREDNISOLONE
     Dosage: 4 MG, SIX ON DAY ONE, DECREASE BY ONE TABLET DAILY
     Route: 048
  21. PROPRANOLOL [Concomitant]
     Active Substance: PROPRANOLOL HYDROCHLORIDE
     Dosage: 120 MG, UNK
  22. CETRIZINE [Concomitant]
     Active Substance: CETIRIZINE HYDROCHLORIDE
     Dosage: 10 MG, UNK
  23. XANAX [Concomitant]
     Active Substance: ALPRAZOLAM
     Indication: ANXIETY

REACTIONS (1)
  - Pain [Unknown]
